FAERS Safety Report 5961108-2 (Version None)
Quarter: 2008Q4

REPORT INFORMATION
  Report Type: 
  Country: None (occurrence: None)
  Receive Date: 20081121
  Receipt Date: 20081113
  Transmission Date: 20090506
  Serious: Yes (Other)
  Sender: FDA-Public Use
  Company Number: US-JNJFOC-20081103471

PATIENT
  Age: 66 Year
  Sex: Female
  Weight: 108.86 kg

DRUGS (4)
  1. REMICADE [Suspect]
     Dosage: 2 WEEKS AFTER INTIAL DOSE
     Route: 042
  2. REMICADE [Suspect]
     Indication: PSORIATIC ARTHROPATHY
     Dosage: INFUSIONS ON UNKNOWN DATES FOR 0,2, AND WEEKS
     Route: 042
  3. BENICAR [Concomitant]
     Indication: HYPERTENSION
  4. ATENOLOL [Concomitant]

REACTIONS (1)
  - T-CELL TYPE ACUTE LEUKAEMIA [None]
